FAERS Safety Report 12559481 (Version 1)
Quarter: 2016Q3

REPORT INFORMATION
  Report Type: Spontaneous
  Country: US (occurrence: US)
  Receive Date: 20160715
  Receipt Date: 20160715
  Transmission Date: 20161109
  Serious: No
  Sender: FDA-Public Use
  Company Number: US-PFIZER INC-2016224032

PATIENT
  Age: 41 Year
  Sex: Female
  Weight: 44.35 kg

DRUGS (4)
  1. IBRANCE [Suspect]
     Active Substance: PALBOCICLIB
     Dosage: 75 MG, CYCLIC(1 CAPSULE DAILY FOR 21 OF 28 DAYS) (EVERY DAY X21 DAYS, 7 DAYS OFF, EVERY 28 DAYS)
     Route: 048
  2. FASLODEX [Concomitant]
     Active Substance: FULVESTRANT
     Dosage: UNK
  3. XGEVA [Concomitant]
     Active Substance: DENOSUMAB
     Dosage: UNK
  4. IBRANCE [Suspect]
     Active Substance: PALBOCICLIB
     Indication: BREAST CANCER METASTATIC
     Dosage: 100 UNK, UNK

REACTIONS (3)
  - Depression [Unknown]
  - Fatigue [Recovering/Resolving]
  - Product use issue [Unknown]
